FAERS Safety Report 4332618-9 (Version None)
Quarter: 2004Q1

REPORT INFORMATION
  Report Type: 
  Country: None (occurrence: None)
  Receive Date: 20040330
  Receipt Date: 20040309
  Transmission Date: 20041129
  Serious: Yes (Life-Threatening, Congenital Anomaly)
  Sender: FDA-Public Use
  Company Number: S03-FIN-04642-02

PATIENT
  Sex: Male
  Weight: 3.7 kg

DRUGS (2)
  1. CIPRAMIL (CITALOPRAM HYDROBROMIDE) [Suspect]
     Indication: PANIC ATTACK
     Dosage: 20 MG QD TRANSPLACENTAL
     Route: 064
     Dates: end: 20030901
  2. CIPRAMIL (CITALOPRAM HYDROBROMIDE) [Suspect]
     Indication: PANIC ATTACK
     Dosage: 10 MG UNK PO
     Route: 048
     Dates: start: 20030101, end: 20031001

REACTIONS (9)
  - BASE EXCESS NEGATIVE [None]
  - BLOOD SODIUM INCREASED [None]
  - CONGENITAL HAND MALFORMATION [None]
  - CONGENITAL HYDROCEPHALUS [None]
  - FEEDING PROBLEM IN NEWBORN [None]
  - MATERNAL DRUGS AFFECTING FOETUS [None]
  - PROTEIN URINE PRESENT [None]
  - SOMNOLENCE [None]
  - SYNOVITIS [None]
